FAERS Safety Report 24450069 (Version 1)
Quarter: 2024Q4

REPORT INFORMATION
  Report Type: Spontaneous
  Country: US (occurrence: US)
  Receive Date: 20241017
  Receipt Date: 20241017
  Transmission Date: 20250114
  Serious: No
  Sender: INTERSECT ENT
  Company Number: US-Intersect Ent, Inc.-2163208

PATIENT
  Age: 38 Year
  Sex: Female
  Weight: 172 kg

DRUGS (1)
  1. SINUVA [Suspect]
     Active Substance: MOMETASONE FUROATE
     Indication: Chronic rhinosinusitis with nasal polyps
     Dates: start: 20240207

REACTIONS (5)
  - Nasal congestion [Unknown]
  - Nasal odour [Unknown]
  - Headache [Recovered/Resolved]
  - Nasal crusting [Unknown]
  - Rhinorrhoea [Unknown]

NARRATIVE: CASE EVENT DATE: 20240207
